FAERS Safety Report 11152818 (Version 1)
Quarter: 2015Q2

REPORT INFORMATION
  Report Type: Other
  Country: IT (occurrence: IT)
  Receive Date: 20150601
  Receipt Date: 20150601
  Transmission Date: 20150821
  Serious: Yes (Death, Hospitalization)
  Sender: FDA-Public Use
  Company Number: IT-ASTELLAS-2015US018648

PATIENT
  Age: 44 Year
  Sex: Female

DRUGS (1)
  1. ERLOTINIB [Suspect]
     Active Substance: ERLOTINIB
     Indication: NON-SMALL CELL LUNG CANCER STAGE IV
     Dosage: 150 MG 30 FILM-COATED TABLETS IN, ONCE DAILY
     Route: 048
     Dates: start: 20150423, end: 20150515

REACTIONS (3)
  - Pyrexia [Fatal]
  - Pain in extremity [Fatal]
  - Confusional state [Fatal]

NARRATIVE: CASE EVENT DATE: 20150518
